FAERS Safety Report 24198979 (Version 1)
Quarter: 2024Q3

REPORT INFORMATION
  Report Type: Spontaneous
  Country: JP (occurrence: JP)
  Receive Date: 20240812
  Receipt Date: 20240812
  Transmission Date: 20241017
  Serious: Yes (Hospitalization, Other)
  Sender: ROCHE
  Company Number: JP-CHUGAI-2024026661AA

PATIENT
  Age: 8 Decade
  Sex: Female

DRUGS (3)
  1. HYALURONIDASE [Suspect]
     Active Substance: HYALURONIDASE\HYALURONIDASE (HUMAN RECOMBINANT)
     Indication: Breast cancer
     Dosage: 10 MILLILITER, ONCE/3WEEKS
     Route: 042
     Dates: start: 20240610, end: 20240610
  2. HERCEPTIN [Suspect]
     Active Substance: TRASTUZUMAB
     Indication: Breast cancer
     Dosage: UNK
     Route: 042
  3. PERJETA [Suspect]
     Active Substance: PERTUZUMAB
     Indication: Breast cancer
     Dosage: UNK
     Route: 042

REACTIONS (4)
  - Pulmonary hypertension [Unknown]
  - Systemic scleroderma [Unknown]
  - Renal impairment [Not Recovered/Not Resolved]
  - Physical deconditioning [Unknown]

NARRATIVE: CASE EVENT DATE: 20240701
